FAERS Safety Report 10177060 (Version 1)
Quarter: 2014Q2

REPORT INFORMATION
  Report Type: Spontaneous
  Country: US (occurrence: None)
  Receive Date: 20140515
  Receipt Date: 20140515
  Transmission Date: 20141212
  Serious: Yes (Death)
  Sender: FDA-Public Use
  Company Number: None

PATIENT
  Sex: Female

DRUGS (1)
  1. COPAXONE 20 MG TEVA [Suspect]
     Indication: MULTIPLE SCLEROSIS
     Route: 058
     Dates: start: 201206

REACTIONS (2)
  - Drug ineffective [None]
  - Pharyngeal disorder [None]
